FAERS Safety Report 20503629 (Version 2)
Quarter: 2022Q1

REPORT INFORMATION
  Report Type: Report from Study
  Country: UA (occurrence: UA)
  Receive Date: 20220222
  Receipt Date: 20220225
  Transmission Date: 20220424
  Serious: Yes (Life-Threatening, Hospitalization)
  Sender: FDA-Public Use
  Company Number: UA-CELGENE-UKR-20220205204

PATIENT
  Sex: Male

DRUGS (71)
  1. OZANIMOD [Suspect]
     Active Substance: OZANIMOD
     Indication: Colitis ulcerative
     Route: 048
     Dates: start: 20170207, end: 20211124
  2. OZANIMOD [Suspect]
     Active Substance: OZANIMOD
     Route: 048
     Dates: start: 20220215
  3. OZANIMOD [Suspect]
     Active Substance: OZANIMOD
     Route: 048
     Dates: start: 20170207, end: 20170309
  4. OZANIMOD [Suspect]
     Active Substance: OZANIMOD
     Route: 048
     Dates: start: 20170309, end: 20170413
  5. OZANIMOD [Suspect]
     Active Substance: OZANIMOD
     Route: 048
     Dates: start: 20170413, end: 20170525
  6. OZANIMOD [Suspect]
     Active Substance: OZANIMOD
     Route: 048
     Dates: start: 20170525, end: 20170711
  7. OZANIMOD [Suspect]
     Active Substance: OZANIMOD
     Route: 048
     Dates: start: 20170711, end: 20171003
  8. OZANIMOD [Suspect]
     Active Substance: OZANIMOD
     Route: 048
     Dates: start: 20171003, end: 20171228
  9. OZANIMOD [Suspect]
     Active Substance: OZANIMOD
     Route: 048
     Dates: start: 20171228, end: 20180321
  10. OZANIMOD [Suspect]
     Active Substance: OZANIMOD
     Route: 048
     Dates: start: 20180321, end: 20180612
  11. OZANIMOD [Suspect]
     Active Substance: OZANIMOD
     Route: 048
     Dates: start: 20180612, end: 20180904
  12. OZANIMOD [Suspect]
     Active Substance: OZANIMOD
     Route: 048
     Dates: start: 20180904, end: 20181127
  13. OZANIMOD [Suspect]
     Active Substance: OZANIMOD
     Route: 048
     Dates: start: 20181127, end: 20190219
  14. OZANIMOD [Suspect]
     Active Substance: OZANIMOD
     Route: 048
     Dates: start: 20190219, end: 20190513
  15. OZANIMOD [Suspect]
     Active Substance: OZANIMOD
     Route: 048
     Dates: start: 20190513, end: 20190806
  16. OZANIMOD [Suspect]
     Active Substance: OZANIMOD
     Route: 048
     Dates: start: 20190806, end: 20191030
  17. OZANIMOD [Suspect]
     Active Substance: OZANIMOD
     Route: 048
     Dates: start: 20191030, end: 20200121
  18. OZANIMOD [Suspect]
     Active Substance: OZANIMOD
     Route: 048
     Dates: start: 20200121, end: 20200414
  19. OZANIMOD [Suspect]
     Active Substance: OZANIMOD
     Route: 048
     Dates: start: 20200414, end: 20200707
  20. OZANIMOD [Suspect]
     Active Substance: OZANIMOD
     Route: 048
     Dates: start: 20200707, end: 20200929
  21. OZANIMOD [Suspect]
     Active Substance: OZANIMOD
     Route: 048
     Dates: start: 20200929, end: 20201222
  22. OZANIMOD [Suspect]
     Active Substance: OZANIMOD
     Route: 048
     Dates: start: 20201222, end: 20210315
  23. OZANIMOD [Suspect]
     Active Substance: OZANIMOD
     Route: 048
     Dates: start: 20210315, end: 20210607
  24. OZANIMOD [Suspect]
     Active Substance: OZANIMOD
     Route: 048
     Dates: start: 20210607, end: 20210831
  25. OZANIMOD [Suspect]
     Active Substance: OZANIMOD
     Route: 048
     Dates: start: 20210831, end: 20211124
  26. OZANIMOD [Suspect]
     Active Substance: OZANIMOD
     Route: 048
     Dates: start: 20211124, end: 20220215
  27. OZANIMOD [Suspect]
     Active Substance: OZANIMOD
     Route: 048
     Dates: start: 20220215
  28. Salofalk [Concomitant]
     Indication: Colitis ulcerative
     Dosage: 1500 MILLIGRAM
     Route: 048
     Dates: start: 201505, end: 20191019
  29. Salofalk [Concomitant]
     Indication: Colitis ulcerative
     Dosage: 4000 MILLIGRAM
     Route: 048
     Dates: start: 20191020, end: 20191117
  30. Salofalk [Concomitant]
     Route: 048
     Dates: start: 20191118
  31. INDAPAMIDE\PERINDOPRIL ARGININE [Concomitant]
     Active Substance: INDAPAMIDE\PERINDOPRIL ARGININE
     Indication: Hypertension
     Dosage: 1 TABLET
     Route: 048
     Dates: start: 2009
  32. INDAPAMIDE\PERINDOPRIL ARGININE [Concomitant]
     Active Substance: INDAPAMIDE\PERINDOPRIL ARGININE
     Indication: Myocardial ischaemia
  33. INDAPAMIDE\PERINDOPRIL ARGININE [Concomitant]
     Active Substance: INDAPAMIDE\PERINDOPRIL ARGININE
     Indication: Cardiac disorder
  34. DIMEXID [Concomitant]
     Indication: Synovitis
     Route: 061
     Dates: start: 20180901, end: 20180910
  35. PROCAINE [Concomitant]
     Active Substance: PROCAINE
     Indication: Synovitis
     Route: 061
     Dates: start: 20180901, end: 20180910
  36. HYDROCORTISONE [Concomitant]
     Active Substance: HYDROCORTISONE
     Indication: Synovitis
     Route: 061
     Dates: start: 20180901, end: 20180910
  37. HYDROCORTISONE [Concomitant]
     Active Substance: HYDROCORTISONE
     Dosage: .7143 PERCENT
     Route: 061
     Dates: start: 20201017, end: 20201030
  38. KETOROLAC TROMETHAMINE [Concomitant]
     Active Substance: KETOROLAC TROMETHAMINE
     Indication: Synovitis
     Dosage: 1 ML
     Route: 030
     Dates: start: 20180901, end: 20180910
  39. Revmoxicam [Concomitant]
     Indication: Synovitis
     Dosage: 1 AMPOULE
     Route: 030
     Dates: start: 20180905, end: 20180909
  40. Moviksikam [Concomitant]
     Indication: Synovitis
     Dosage: 15 MILLIGRAM
     Route: 048
     Dates: start: 20180910, end: 20180918
  41. AMINO ACIDS\DEXTROSE\ELECTROLYTES NOS [Concomitant]
     Active Substance: AMINO ACIDS\DEXTROSE\ELECTROLYTES NOS
     Indication: Synovitis
     Dosage: 1 MILLIGRAM/MILLILITERS
     Route: 030
     Dates: start: 20180905, end: 20180914
  42. POLYETHYLENE GLYCOL 4000\POTASSIUM CHLORIDE\SODIUM BICARBONATE\SODIUM [Concomitant]
     Active Substance: POLYETHYLENE GLYCOL 4000\POTASSIUM CHLORIDE\SODIUM BICARBONATE\SODIUM CHLORIDE\SODIUM SULFATE
     Indication: Colonoscopy
     Dosage: 4 SACHETS
     Route: 048
     Dates: start: 20171227, end: 20171227
  43. POLYETHYLENE GLYCOL 4000\POTASSIUM CHLORIDE\SODIUM BICARBONATE\SODIUM [Concomitant]
     Active Substance: POLYETHYLENE GLYCOL 4000\POTASSIUM CHLORIDE\SODIUM BICARBONATE\SODIUM CHLORIDE\SODIUM SULFATE
     Dosage: 4 SACHETS
     Route: 048
     Dates: start: 20181122, end: 20181122
  44. POLYETHYLENE GLYCOL 4000\POTASSIUM CHLORIDE\SODIUM BICARBONATE\SODIUM [Concomitant]
     Active Substance: POLYETHYLENE GLYCOL 4000\POTASSIUM CHLORIDE\SODIUM BICARBONATE\SODIUM CHLORIDE\SODIUM SULFATE
     Dosage: 4 SACHETS
     Route: 048
     Dates: start: 20191027, end: 20191027
  45. POLYETHYLENE GLYCOL 4000\POTASSIUM CHLORIDE\SODIUM BICARBONATE\SODIUM [Concomitant]
     Active Substance: POLYETHYLENE GLYCOL 4000\POTASSIUM CHLORIDE\SODIUM BICARBONATE\SODIUM CHLORIDE\SODIUM SULFATE
     Dosage: 4 SACHETS
     Route: 048
     Dates: start: 20200928, end: 20200928
  46. POLYETHYLENE GLYCOL 4000\POTASSIUM CHLORIDE\SODIUM BICARBONATE\SODIUM [Concomitant]
     Active Substance: POLYETHYLENE GLYCOL 4000\POTASSIUM CHLORIDE\SODIUM BICARBONATE\SODIUM CHLORIDE\SODIUM SULFATE
     Dosage: 4 SACHETS
     Route: 048
     Dates: start: 20210830, end: 20210830
  47. MEBEVERINE [Concomitant]
     Active Substance: MEBEVERINE
     Indication: Colitis ulcerative
     Route: 048
     Dates: start: 20191020, end: 20191117
  48. Satsef [Concomitant]
     Indication: Prostatic adenoma
     Route: 041
     Dates: start: 20200113, end: 20200117
  49. ABIFLOX [Concomitant]
     Indication: Prostatic adenoma
     Dosage: 500 MILLIGRAM
     Route: 048
     Dates: start: 20200113, end: 20200113
  50. HEPARIN [Concomitant]
     Active Substance: HEPARIN SODIUM
     Indication: Embolism
     Dosage: 5000 U
     Route: 041
     Dates: start: 20200113, end: 20200114
  51. Trisol [Concomitant]
     Indication: Prostatic adenoma
     Dosage: 400 MILLIGRAM/MILLILITERS
     Route: 041
     Dates: start: 20200113, end: 20200114
  52. Essentiale N forte [Concomitant]
     Indication: Gamma-glutamyltransferase
     Dosage: 6 CAPSULE
     Route: 048
     Dates: start: 20200211, end: 20200224
  53. Essentiale N forte [Concomitant]
     Indication: Alanine aminotransferase
  54. HOMEOPATHICS [Concomitant]
     Active Substance: HOMEOPATHICS
     Indication: Leukocytosis
     Dosage: 3 TABLET
     Route: 048
     Dates: start: 20200211, end: 20200224
  55. Olefen-AF [Concomitant]
     Indication: Chondritis
     Dosage: 200 MILLIGRAM
     Route: 048
     Dates: start: 20201017, end: 20201026
  56. Olefen-AF [Concomitant]
     Indication: Synovitis
  57. Dona [Concomitant]
     Indication: Osteoarthritis
     Dosage: 9 MILLIGRAM/MILLILITERS
     Route: 030
     Dates: start: 20201017, end: 20201030
  58. VOLTAREN [Concomitant]
     Active Substance: DICLOFENAC SODIUM
     Indication: Synovitis
     Route: 065
     Dates: start: 20201017, end: 20201030
  59. MODERNA COVID-19 VACCINE [Concomitant]
     Active Substance: ELASOMERAN
     Indication: COVID-19
     Dosage: .5 MILLIGRAM/MILLILITERS
     Route: 030
     Dates: start: 20210727, end: 20210727
  60. MODERNA COVID-19 VACCINE [Concomitant]
     Active Substance: ELASOMERAN
     Dosage: .5 MILLIGRAM/MILLILITERS
     Route: 030
     Dates: start: 20210825, end: 20210825
  61. REOSORBILACT [Concomitant]
     Active Substance: CALCIUM CHLORIDE\MAGNESIUM CHLORIDE\POTASSIUM CHLORIDE\SODIUM CHLORIDE\SODIUM LACTATE\SORBITOL
     Indication: Intestinal obstruction
     Dosage: 200 MILLIGRAM/MILLILITERS
     Route: 041
     Dates: start: 20220108, end: 20220114
  62. RINGERS SOLUTION [Concomitant]
     Active Substance: CALCIUM CHLORIDE\POTASSIUM CHLORIDE\SODIUM CHLORIDE
     Indication: Intestinal obstruction
     Dosage: 200 MILLIGRAM/MILLILITERS
     Route: 041
     Dates: start: 20220108, end: 20220114
  63. METOCLOPRAMIDE [Concomitant]
     Active Substance: METOCLOPRAMIDE
     Indication: Intestinal obstruction
     Dosage: 1 AMPULE 5MG/5ML
     Route: 030
     Dates: start: 20220108, end: 20220114
  64. PLATYPHYLLINE [Concomitant]
     Indication: Intestinal obstruction
     Dosage: 1 AMPULE 2G/5ML
     Route: 030
     Dates: start: 20220108, end: 20220114
  65. Analgin [Concomitant]
     Indication: Intestinal obstruction
     Dosage: 500MG/ML
     Route: 030
     Dates: start: 20220108, end: 20220114
  66. DEXTROSE [Concomitant]
     Active Substance: DEXTROSE
     Indication: Intestinal obstruction
     Dosage: 5MG/100ML
     Route: 030
     Dates: start: 20220108, end: 20220114
  67. CEFTRIAXONE [Concomitant]
     Active Substance: CEFTRIAXONE
     Indication: Intestinal obstruction
     Dosage: 2000 MILLIGRAM
     Route: 030
     Dates: start: 20220108, end: 20220114
  68. AMIZON [Concomitant]
     Indication: Obstructive airways disorder
     Dosage: 1500 MILLIGRAM
     Route: 030
     Dates: start: 20220127, end: 20220131
  69. AMIZON [Concomitant]
     Dosage: 1500 MILLIGRAM
     Route: 030
     Dates: start: 20220128, end: 20220201
  70. Ascocin [Concomitant]
     Indication: Viral infection
     Dosage: 1 TABLET
     Route: 048
     Dates: start: 20220126, end: 20220207
  71. Ascazin [Concomitant]
     Indication: Respiratory tract infection
     Dosage: 1 TAB
     Route: 048
     Dates: start: 20220201, end: 20220207

REACTIONS (1)
  - Colorectal cancer stage II [Unknown]

NARRATIVE: CASE EVENT DATE: 20220208
